FAERS Safety Report 8206262-7 (Version None)
Quarter: 2012Q1

REPORT INFORMATION
  Report Type: 
  Country: None (occurrence: None)
  Receive Date: 20120313
  Receipt Date: 20120307
  Transmission Date: 20120608
  Serious: Yes (Other)
  Sender: FDA-Public Use
  Company Number: US-ROCHE-784032

PATIENT
  Sex: Female
  Weight: 46.308 kg

DRUGS (6)
  1. ACCUTANE [Suspect]
     Indication: ACNE CYSTIC
     Route: 065
     Dates: start: 19930825, end: 19940527
  2. ACCUTANE [Suspect]
     Route: 065
     Dates: start: 19940921, end: 19941216
  3. ACCUTANE [Suspect]
     Route: 065
  4. CLEOCIN HYDROCHLORIDE [Concomitant]
  5. SELDANE [Concomitant]
  6. ACCUTANE [Suspect]
     Route: 065
     Dates: start: 19950119, end: 19960509

REACTIONS (10)
  - COLITIS ULCERATIVE [None]
  - IRRITABLE BOWEL SYNDROME [None]
  - VAGINAL INFECTION [None]
  - HAEMATURIA [None]
  - INFLAMMATORY BOWEL DISEASE [None]
  - HAEMORRHOIDS [None]
  - DEPRESSION [None]
  - DYSURIA [None]
  - STRESS [None]
  - BREAST MASS [None]
